FAERS Safety Report 7778628-0 (Version None)
Quarter: 2011Q3

REPORT INFORMATION
  Report Type: 
  Country: None (occurrence: None)
  Receive Date: 20110926
  Receipt Date: 20110915
  Transmission Date: 20111222
  Serious: Yes (Other)
  Sender: FDA-Public Use
  Company Number: US-BAYER-201037971NA

PATIENT
  Age: 19 Year
  Sex: Female
  Weight: 47.619 kg

DRUGS (10)
  1. ADVIL [Concomitant]
     Dosage: UNK UNK, PRN
  2. LEXAPRO [Concomitant]
     Dosage: 100 MG, UNK
  3. YASMIN [Suspect]
     Indication: MENSTRUATION IRREGULAR
  4. YASMIN [Suspect]
     Indication: ABDOMINAL PAIN
     Dosage: UNK UNK, QD
     Route: 048
     Dates: start: 20010101
  5. VALTREX [Concomitant]
     Indication: ORAL HERPES
     Dosage: UNK
     Dates: start: 20030101
  6. YAZ [Suspect]
     Indication: ABDOMINAL PAIN
     Dosage: UNK UNK, QD
     Route: 048
  7. EMERGEN-C [Concomitant]
     Dosage: UNK UNK, PRN
  8. YAZ [Suspect]
     Indication: MENSTRUATION IRREGULAR
  9. DROSPIRENONE AND ETHINYL ESTRADIOL [Suspect]
     Indication: ABDOMINAL PAIN
     Dosage: UNK UNK, QD
     Route: 048
     Dates: start: 20010101
  10. DROSPIRENONE AND ETHINYL ESTRADIOL [Suspect]
     Indication: MENSTRUATION IRREGULAR

REACTIONS (3)
  - ABDOMINAL PAIN UPPER [None]
  - CHOLECYSTITIS CHRONIC [None]
  - CHOLELITHIASIS [None]
